FAERS Safety Report 5480903-X (Version None)
Quarter: 2007Q4

REPORT INFORMATION
  Report Type: 
  Country: None (occurrence: None)
  Receive Date: 20071004
  Receipt Date: 20070919
  Transmission Date: 20080405
  Serious: Yes (Hospitalization, Other)
  Sender: FDA-Public Use
  Company Number: 230077M07GBR

PATIENT
  Age: 54 Year
  Sex: Female

DRUGS (1)
  1. REBIF [Suspect]
     Indication: MULTIPLE SCLEROSIS
     Dosage: 44 , 3 IN 1 WEEKS, SUBCUTANEOUS
     Route: 058
     Dates: start: 20040601

REACTIONS (1)
  - SKIN CANCER [None]
